FAERS Safety Report 20412240 (Version 1)
Quarter: 2022Q1

REPORT INFORMATION
  Report Type: Spontaneous
  Country: IT (occurrence: IT)
  Receive Date: 20220201
  Receipt Date: 20220201
  Transmission Date: 20220423
  Serious: Yes (Death, Hospitalization, Other)
  Sender: FDA-Public Use
  Company Number: IT-AMGEN-ITASP2022012963

PATIENT

DRUGS (3)
  1. CARFILZOMIB [Suspect]
     Active Substance: CARFILZOMIB
     Indication: Plasma cell myeloma
     Dosage: UNK
     Route: 065
  2. CYCLOPHOSPHAMIDE [Suspect]
     Active Substance: CYCLOPHOSPHAMIDE
     Indication: Plasma cell myeloma
     Dosage: UNK
     Route: 065
  3. FILGRASTIM [Suspect]
     Active Substance: FILGRASTIM
     Indication: Product used for unknown indication
     Dosage: UNK
     Route: 065

REACTIONS (15)
  - Infection [Fatal]
  - Adverse event [Fatal]
  - Plasma cell myeloma [Unknown]
  - Polyneuropathy [Unknown]
  - Deep vein thrombosis [Unknown]
  - Therapy partial responder [Unknown]
  - Oedema [Unknown]
  - Constipation [Unknown]
  - Rash [Unknown]
  - Hyperglycaemia [Unknown]
  - Treatment failure [Unknown]
  - Nausea [Unknown]
  - Vomiting [Unknown]
  - Haematotoxicity [Unknown]
  - Off label use [Unknown]
